FAERS Safety Report 5707976-0 (Version None)
Quarter: 2008Q2

REPORT INFORMATION
  Report Type: 
  Country: None (occurrence: None)
  Receive Date: 20080417
  Receipt Date: 20080408
  Transmission Date: 20081010
  Serious: Yes (Other)
  Sender: FDA-Public Use
  Company Number: PHHY2008BR05323

PATIENT
  Age: 72 Year
  Sex: Female
  Weight: 60 kg

DRUGS (3)
  1. FORASEQ [Suspect]
     Dosage: 1X/DAY, 2X/DAY (DURING BRONCHITIS)
     Route: 048
     Dates: start: 19930101
  2. AEROFLUX [Concomitant]
     Indication: BRONCHITIS
  3. TEGRETOL [Concomitant]
     Dosage: UNK, UNK

REACTIONS (7)
  - AGITATION [None]
  - DIABETES MELLITUS [None]
  - HAEMORRHAGIC STROKE [None]
  - HYPERTENSION [None]
  - INSOMNIA [None]
  - MONOPLEGIA [None]
  - OEDEMA PERIPHERAL [None]
